FAERS Safety Report 14609253 (Version 1)
Quarter: 2018Q1

REPORT INFORMATION
  Report Type: Spontaneous
  Country: GR (occurrence: GR)
  Receive Date: 20180307
  Receipt Date: 20180307
  Transmission Date: 20180509
  Serious: Yes (Other)
  Sender: FDA-Public Use
  Company Number: GR-IGSA-SR10005957

PATIENT
  Age: 63 Year
  Sex: Female
  Weight: 75 kg

DRUGS (5)
  1. IG VENA [Suspect]
     Active Substance: HUMAN IMMUNOGLOBULIN G
     Indication: MYASTHENIA GRAVIS
     Dosage: 30 G, UNK
     Route: 042
     Dates: start: 2004, end: 2008
  2. KIOVIG [Suspect]
     Active Substance: HUMAN IMMUNOGLOBULIN G
     Indication: MYASTHENIA GRAVIS
     Dosage: 30 G, UNK
     Route: 042
     Dates: start: 2004, end: 2008
  3. SANDOGLOBULIN [Suspect]
     Active Substance: HUMAN IMMUNOGLOBULIN G
     Indication: MYASTHENIA GRAVIS
     Dosage: 30 G, UNK
     Route: 042
     Dates: start: 2004, end: 2008
  4. FLEBOGAMMA 5% [Suspect]
     Active Substance: HUMAN IMMUNOGLOBULIN G
     Indication: MYASTHENIA GRAVIS
     Dosage: 30 G, UNK
     Route: 042
     Dates: start: 2004, end: 2008
  5. PRIVIGEN [Suspect]
     Active Substance: HUMAN IMMUNOGLOBULIN G
     Indication: MYASTHENIA GRAVIS
     Dosage: 30 G, UNK
     Route: 042
     Dates: start: 2004, end: 2008

REACTIONS (6)
  - Rash [Recovered/Resolved]
  - Oedema peripheral [Recovered/Resolved]
  - Dyspnoea [Recovered/Resolved]
  - Soft tissue swelling [Recovered/Resolved]
  - Speech disorder [Recovered/Resolved]
  - Asthenia [Recovered/Resolved]

NARRATIVE: CASE EVENT DATE: 2004
